FAERS Safety Report 13892875 (Version 1)
Quarter: 2017Q3

REPORT INFORMATION
  Report Type: Spontaneous
  Country: US (occurrence: US)
  Receive Date: 20170822
  Receipt Date: 20170822
  Transmission Date: 20171127
  Serious: Yes (Other)
  Sender: FDA-Public Use
  Company Number: US-ROCHE-1054269

PATIENT
  Age: 49 Year
  Sex: Female
  Weight: 73.9 kg

DRUGS (3)
  1. ARIMIDEX [Concomitant]
     Active Substance: ANASTROZOLE
     Route: 065
     Dates: start: 201205
  2. HYDROXYUREA. [Concomitant]
     Active Substance: HYDROXYUREA
     Route: 065
  3. HERCEPTIN [Suspect]
     Active Substance: TRASTUZUMAB
     Indication: BREAST CANCER
     Route: 042
     Dates: start: 20110923, end: 20121026

REACTIONS (11)
  - Nausea [Unknown]
  - Hypersensitivity [Unknown]
  - Headache [Unknown]
  - Pruritus [Unknown]
  - Flushing [Unknown]
  - Rash [Unknown]
  - Tachycardia [Unknown]
  - Back pain [Unknown]
  - Urticaria [Unknown]
  - Abdominal pain [Unknown]
  - Pruritus [Unknown]

NARRATIVE: CASE EVENT DATE: 20111007
